FAERS Safety Report 14160365 (Version 1)
Quarter: 2017Q4

REPORT INFORMATION
  Report Type: Spontaneous
  Country: US (occurrence: US)
  Receive Date: 20171103
  Receipt Date: 20171103
  Transmission Date: 20180321
  Serious: Yes (Life-Threatening, Disabling, Other)
  Sender: FDA-Public Use
  Company Number: None

PATIENT
  Sex: Female
  Weight: 108 kg

DRUGS (2)
  1. DULOXETIN [Suspect]
     Active Substance: DULOXETINE
     Indication: ARTHRALGIA
     Dosage: ?          QUANTITY:1 CAPSULE(S);?
     Route: 048
     Dates: start: 20100401, end: 20171103
  2. DULOXETIN [Suspect]
     Active Substance: DULOXETINE
     Indication: MYALGIA
     Dosage: ?          QUANTITY:1 CAPSULE(S);?
     Route: 048
     Dates: start: 20100401, end: 20171103

REACTIONS (2)
  - Suicidal ideation [None]
  - Paraesthesia [None]

NARRATIVE: CASE EVENT DATE: 20111101
